FAERS Safety Report 13670224 (Version 1)
Quarter: 2017Q2

REPORT INFORMATION
  Report Type: Report from Study
  Country: US (occurrence: US)
  Receive Date: 20170620
  Receipt Date: 20170620
  Transmission Date: 20170830
  Serious: Yes (Other)
  Sender: FDA-Public Use
  Company Number: US-BAYER-2017-054405

PATIENT
  Age: 71 Year
  Sex: Male

DRUGS (1)
  1. NEXAVAR [Suspect]
     Active Substance: SORAFENIB
     Indication: HEPATOCELLULAR CARCINOMA
     Dosage: 200 MG, BID
     Route: 048
     Dates: start: 20170309, end: 20170608

REACTIONS (35)
  - Heart rate increased [None]
  - Decreased appetite [None]
  - Epistaxis [None]
  - Pruritus [None]
  - Diarrhoea [None]
  - Hyperkeratosis [Not Recovered/Not Resolved]
  - Blood pressure increased [Recovering/Resolving]
  - Skin disorder [None]
  - Scab [None]
  - Abdominal pain [None]
  - Pain in extremity [None]
  - Hepatic enzyme increased [None]
  - Headache [None]
  - Fatigue [None]
  - Haemoglobin decreased [None]
  - Fatigue [None]
  - Blister [Not Recovered/Not Resolved]
  - Localised oedema [None]
  - Headache [None]
  - Dry skin [None]
  - White blood cell disorder [None]
  - Blood glucose fluctuation [None]
  - Blood glucose decreased [None]
  - Mass [None]
  - Rash pruritic [None]
  - Dry skin [None]
  - Pain in extremity [None]
  - Erythema [Not Recovered/Not Resolved]
  - Hyperkeratosis [None]
  - Platelet count abnormal [None]
  - Renal function test abnormal [None]
  - Flatulence [None]
  - Hyperkeratosis [None]
  - Pain in extremity [Not Recovered/Not Resolved]
  - Back pain [None]

NARRATIVE: CASE EVENT DATE: 2017
